FAERS Safety Report 23048383 (Version 1)
Quarter: 2023Q4

REPORT INFORMATION
  Report Type: Spontaneous
  Country: US (occurrence: US)
  Receive Date: 20231010
  Receipt Date: 20231010
  Transmission Date: 20240110
  Serious: Yes (Hospitalization, Other)
  Sender: FDA-Public Use
  Company Number: US-AMGEN-USASP2023177592

PATIENT

DRUGS (1)
  1. REPATHA [Suspect]
     Active Substance: EVOLOCUMAB
     Indication: Blood cholesterol increased
     Dosage: UNK
     Route: 065

REACTIONS (12)
  - Acute myocardial infarction [Unknown]
  - Peripheral swelling [Unknown]
  - Neck pain [Unknown]
  - Vertigo [Unknown]
  - Asthenia [Unknown]
  - Vision blurred [Unknown]
  - Depression [Unknown]
  - Fatigue [Unknown]
  - Myalgia [Unknown]
  - Influenza [Unknown]
  - Back pain [Unknown]
  - Arthralgia [Unknown]
